FAERS Safety Report 11587242 (Version 3)
Quarter: 2015Q4

REPORT INFORMATION
  Report Type: Report from Study
  Country: US (occurrence: US)
  Receive Date: 20151001
  Receipt Date: 20151020
  Transmission Date: 20160304
  Serious: Yes (Hospitalization, Other)
  Sender: FDA-Public Use
  Company Number: US-KADMON PHARMACEUTICALS, LLC-KAD201509-003401

PATIENT
  Age: 65 Year
  Sex: Male

DRUGS (5)
  1. RIBAVIRIN. [Suspect]
     Active Substance: RIBAVIRIN
     Indication: HEPATITIS C
     Dosage: TABLET
     Route: 048
     Dates: end: 20150915
  2. METFORMIN [Concomitant]
     Active Substance: METFORMIN HYDROCHLORIDE
  3. VIGRAN (MULTIVITAMIN) [Concomitant]
  4. LOSARTAN. [Concomitant]
     Active Substance: LOSARTAN
  5. VIEKIRA PAK [Suspect]
     Active Substance: DASABUVIR\OMBITASVIR\PARITAPREVIR\RITONAVIR
     Indication: HEPATITIS C
     Dosage: TABLET, PER MANUFACTURER?S PACKAGE DIRECTIONS IN MORNING/EVENING WITH FOOD
     Route: 048
     Dates: start: 20150815

REACTIONS (12)
  - Red blood cell count abnormal [Unknown]
  - Fatigue [Unknown]
  - Sensory disturbance [Unknown]
  - Dyspnoea exertional [Unknown]
  - Balance disorder [Unknown]
  - Amnesia [Unknown]
  - Feeling hot [Unknown]
  - Heart rate increased [Unknown]
  - Visual impairment [Unknown]
  - Dyspnoea [Unknown]
  - Dizziness [Unknown]
  - Anaemia [Unknown]

NARRATIVE: CASE EVENT DATE: 20150915
